FAERS Safety Report 10903920 (Version 1)
Quarter: 2015Q1

REPORT INFORMATION
  Report Type: Spontaneous
  Country: IR (occurrence: None)
  Receive Date: 20150306
  Receipt Date: 20150306
  Transmission Date: 20150721
  Serious: Yes (Death, Hospitalization)
  Sender: FDA-Public Use
  Company Number: NSR_01980_2015

PATIENT
  Age: 35 Year
  Sex: Male

DRUGS (2)
  1. TRAMADOL (TRAMADOL) [Suspect]
     Active Substance: TRAMADOL
     Indication: DRUG DEPENDENCE
     Dosage: NOT THE PRESCRIBED AMOUNT
  2. TRAMADOL (TRAMADOL) [Suspect]
     Active Substance: TRAMADOL
     Indication: DRUG WITHDRAWAL SYNDROME
     Dosage: NOT THE PRESCRIBED AMOUNT

REACTIONS (5)
  - Toxicity to various agents [None]
  - Exposure via ingestion [None]
  - Cardio-respiratory arrest [None]
  - Overdose [None]
  - Apnoea [None]
